FAERS Safety Report 9335363 (Version 3)
Quarter: 2013Q2

REPORT INFORMATION
  Report Type: Spontaneous
  Country: JP (occurrence: JP)
  Receive Date: 20130606
  Receipt Date: 20130628
  Transmission Date: 20140414
  Serious: Yes (Other)
  Sender: FDA-Public Use
  Company Number: JP-009507513-1306JPN001648

PATIENT
  Age: 76 Year
  Sex: Female

DRUGS (3)
  1. GASTER D [Suspect]
     Indication: PROPHYLAXIS
     Dosage: 20 MG, QD
     Route: 048
     Dates: start: 20130527, end: 2013
  2. GASTER D [Suspect]
     Indication: PROPHYLAXIS
  3. PREDONINE [Concomitant]
     Dosage: UNK
     Route: 048
     Dates: start: 20130527

REACTIONS (3)
  - Dementia with Lewy bodies [Unknown]
  - Movement disorder [Unknown]
  - Off label use [Unknown]
